FAERS Safety Report 5874200-8 (Version None)
Quarter: 2008Q3

REPORT INFORMATION
  Report Type: 
  Country: None (occurrence: None)
  Receive Date: 20080908
  Receipt Date: 20080829
  Transmission Date: 20090109
  Serious: Yes (Other)
  Sender: FDA-Public Use
  Company Number: US-BAXTER-2008BH009270

PATIENT
  Age: 14 Year
  Sex: Male

DRUGS (1)
  1. DIANEAL [Suspect]
     Indication: PERITONEAL DIALYSIS
     Route: 033
     Dates: start: 20080703

REACTIONS (3)
  - ABDOMINAL PAIN [None]
  - CATHETER RELATED COMPLICATION [None]
  - PERITONEAL MEMBRANE FAILURE [None]
